FAERS Safety Report 5908487-X (Version None)
Quarter: 2008Q4

REPORT INFORMATION
  Report Type: 
  Country: None (occurrence: None)
  Receive Date: 20081006
  Receipt Date: 20080922
  Transmission Date: 20090506
  Serious: No
  Sender: FDA-Public Use
  Company Number: US-BAYER-200826429NA

PATIENT
  Sex: Female

DRUGS (1)
  1. YASMIN [Suspect]
     Indication: DRUG USE FOR UNKNOWN INDICATION
     Route: 048
     Dates: start: 20080429

REACTIONS (3)
  - ABDOMINAL PAIN UPPER [None]
  - ABNORMAL WITHDRAWAL BLEEDING [None]
  - OLIGOMENORRHOEA [None]
